FAERS Safety Report 8847078 (Version 1)
Quarter: 2012Q4

REPORT INFORMATION
  Report Type: Spontaneous
  Country: US (occurrence: None)
  Receive Date: 20121016
  Receipt Date: 20121016
  Transmission Date: 20130627
  Serious: Yes (Hospitalization)
  Sender: FDA-Public Use
  Company Number: ERD2012A01630

PATIENT
  Age: 60 Year
  Sex: Male

DRUGS (6)
  1. PIOGLITAZONE [Suspect]
     Indication: DRUG USE FOR UNKNOWN INDICATION
  2. OPIUM [Suspect]
     Indication: DRUG USE
  3. ASPIRIN (ACETYLSALICYLIC ACID) [Concomitant]
  4. METOPROLOL (METOPROLOL) [Concomitant]
  5. AMLOPIPINE (AMLODIPINE) [Concomitant]
  6. METFORMIN (METFORMIN) [Concomitant]

REACTIONS (4)
  - Rhabdomyolysis [None]
  - Muscular weakness [None]
  - Renal failure acute [None]
  - Blood pH decreased [None]
